FAERS Safety Report 7902371-8 (Version None)
Quarter: 2011Q4

REPORT INFORMATION
  Report Type: 
  Country: None (occurrence: None)
  Receive Date: 20111108
  Receipt Date: 20111108
  Transmission Date: 20120403
  Serious: Yes (Hospitalization)
  Sender: FDA-Public Use
  Company Number: US-PFIZER INC-2011215197

PATIENT
  Age: 31 Year
  Sex: Male

DRUGS (6)
  1. MORPHINE SULFATE [Suspect]
     Indication: VASCULAR OCCLUSION
     Dosage: UNK
     Route: 065
  2. HYDROMORPHONE HCL [Suspect]
     Indication: PAIN
     Dosage: 1 MG, Q3H
     Route: 042
  3. OXYCODONE HYDROCHLORIDE [Suspect]
     Indication: PAIN
  4. HYDROMORPHONE HCL [Suspect]
     Indication: VASCULAR OCCLUSION
     Route: 042
  5. OXYCODONE HCL AND ACETAMINOPHEN [Concomitant]
  6. OXYCODONE HYDROCHLORIDE [Suspect]
     Indication: VASCULAR OCCLUSION
     Dosage: 40 MG, 2X/DAY
     Route: 048

REACTIONS (2)
  - INADEQUATE ANALGESIA [None]
  - DRUG TOLERANCE INCREASED [None]
